FAERS Safety Report 9158816 (Version 2)
Quarter: 2013Q3

REPORT INFORMATION
  Report Type: Spontaneous
  Country: US (occurrence: US)
  Receive Date: 20130111
  Receipt Date: 20130710
  Transmission Date: 20140515
  Serious: Yes (Hospitalization, Other)
  Sender: FDA-Public Use
  Company Number: US-PFIZER INC-2013011135

PATIENT
  Age: 55 Year
  Sex: Female

DRUGS (1)
  1. CHANTIX [Suspect]
     Dosage: STARTING MONTH PACK
     Dates: start: 20091227, end: 20100103

REACTIONS (7)
  - Loss of consciousness [Unknown]
  - Myelopathy [Unknown]
  - Cervical spinal stenosis [Unknown]
  - Fall [Unknown]
  - Post-traumatic neck syndrome [Unknown]
  - Intervertebral disc degeneration [Unknown]
  - Lip injury [Unknown]
